FAERS Safety Report 10651770 (Version 7)
Quarter: 2015Q1

REPORT INFORMATION
  Report Type: Spontaneous
  Country: US (occurrence: US)
  Receive Date: 20141215
  Receipt Date: 20150331
  Transmission Date: 20150720
  Serious: No
  Sender: FDA-Public Use
  Company Number: US-PFIZER INC-2014339269

PATIENT
  Age: 72 Year
  Sex: Male
  Weight: 107 kg

DRUGS (12)
  1. ZANTAC [Concomitant]
     Active Substance: RANITIDINE HYDROCHLORIDE
     Indication: ABDOMINAL PAIN UPPER
     Dosage: UNK
     Dates: start: 2014
  2. TUMS [Concomitant]
     Active Substance: CALCIUM CARBONATE
  3. CALCIUM [Concomitant]
     Active Substance: CALCIUM
  4. SUTENT [Suspect]
     Active Substance: SUNITINIB MALATE
     Dosage: 25 MG, 1X/DAY
     Dates: start: 2014
  5. AMLODIPINE [Concomitant]
     Active Substance: AMLODIPINE BESYLATE
     Dosage: 10 MG, 1X/DAY
     Route: 048
  6. SUTENT [Suspect]
     Active Substance: SUNITINIB MALATE
     Dosage: 25 MG, CYCLIC (2 WEEKS ON AND 2 WEEK OFF)
     Dates: start: 201412
  7. CENTRUM SILVER VITAMIN [Concomitant]
     Dosage: 1 DF
     Route: 048
  8. SUTENT [Suspect]
     Active Substance: SUNITINIB MALATE
     Dosage: 37.5 MG, UNK
     Dates: start: 201412, end: 201412
  9. MAGNESIUM [Concomitant]
     Active Substance: MAGNESIUM
  10. CALCIUM/ZINC/VITAMIN D [Concomitant]
     Dosage: 3 DF, DAILY (TWO IN THE MORNING AND ONE IN THE EVENING)
     Route: 048
  11. SUTENT [Suspect]
     Active Substance: SUNITINIB MALATE
     Indication: RENAL CELL CARCINOMA
     Dosage: 50 MG, CYCLIC
     Dates: start: 201403
  12. AMLODIPINE [Concomitant]
     Active Substance: AMLODIPINE BESYLATE
     Indication: HYPERTENSION
     Dosage: 5 MG, UNK
     Dates: start: 1999

REACTIONS (34)
  - Peripheral swelling [Unknown]
  - Vomiting [Recovering/Resolving]
  - Disorientation [Recovered/Resolved]
  - Burning sensation [Not Recovered/Not Resolved]
  - Gastrooesophageal reflux disease [Recovering/Resolving]
  - Furuncle [Recovering/Resolving]
  - Diarrhoea [Recovering/Resolving]
  - Presyncope [Unknown]
  - Blood pressure increased [Unknown]
  - Insomnia [Recovering/Resolving]
  - Dizziness [Recovered/Resolved]
  - Faeces discoloured [Unknown]
  - Eye disorder [Unknown]
  - Malaise [Not Recovered/Not Resolved]
  - Feeling abnormal [Recovered/Resolved]
  - Hypotension [Recovered/Resolved]
  - Rash [Recovered/Resolved]
  - Anaemia [Unknown]
  - Tenderness [Unknown]
  - Blister [Recovered/Resolved]
  - Constipation [Recovering/Resolving]
  - Feeling cold [Not Recovered/Not Resolved]
  - Chills [Not Recovered/Not Resolved]
  - Dyspepsia [Recovering/Resolving]
  - Heart rate decreased [Recovered/Resolved]
  - Erythema [Unknown]
  - Trigger finger [Not Recovered/Not Resolved]
  - Skin exfoliation [Not Recovered/Not Resolved]
  - Joint swelling [Unknown]
  - Tremor [Not Recovered/Not Resolved]
  - Confusional state [Recovered/Resolved]
  - Limb discomfort [Recovered/Resolved]
  - Movement disorder [Recovered/Resolved]
  - Hyperkeratosis [Unknown]

NARRATIVE: CASE EVENT DATE: 2014
